FAERS Safety Report 4340258-0 (Version None)
Quarter: 2004Q2

REPORT INFORMATION
  Report Type: 
  Country: None (occurrence: None)
  Receive Date: 20040414
  Receipt Date: 20040330
  Transmission Date: 20050107
  Serious: Yes (Other)
  Sender: FDA-Public Use
  Company Number: 2004-0006867

PATIENT
  Age: 36 Year
  Sex: Male

DRUGS (5)
  1. VIREAD [Suspect]
     Indication: HIV INFECTION
     Dosage: ORAL
     Route: 048
  2. NORVIR [Suspect]
     Indication: HIV INFECTION
  3. KALETRA [Suspect]
     Indication: HIV INFECTION
  4. LAMIVUDINE (LAMIVUDINE) [Suspect]
  5. ATAZANAVIR (ATAZANAVIR) [Suspect]
     Indication: HIV INFECTION

REACTIONS (3)
  - HYPERBILIRUBINAEMIA [None]
  - MENINGITIS CRYPTOCOCCAL [None]
  - WEIGHT DECREASED [None]
